FAERS Safety Report 10867404 (Version 1)
Quarter: 2015Q1

REPORT INFORMATION
  Report Type: Spontaneous
  Country: US (occurrence: None)
  Receive Date: 20150220
  Receipt Date: 20150220
  Transmission Date: 20150721
  Serious: Yes (Hospitalization)
  Sender: FDA-Public Use
  Company Number: None

PATIENT
  Age: 51 Year
  Sex: Male
  Weight: 67.3 kg

DRUGS (1)
  1. MEGESTROL [Suspect]
     Active Substance: MEGESTROL
     Indication: HIV INFECTION
     Route: 048
     Dates: start: 20140416, end: 20140805

REACTIONS (3)
  - Adrenal insufficiency [None]
  - Hyperglycaemia [None]
  - Hypertension [None]

NARRATIVE: CASE EVENT DATE: 20140730
